FAERS Safety Report 18279975 (Version 2)
Quarter: 2020Q4

REPORT INFORMATION
  Report Type: Report from Study
  Country: US (occurrence: US)
  Receive Date: 20200917
  Receipt Date: 20201124
  Transmission Date: 20210113
  Serious: Yes (Hospitalization, Other)
  Sender: FDA-Public Use
  Company Number: US-JNJFOC-A-NJ2017-154386

PATIENT
  Age: 34 Year
  Sex: Female
  Weight: 45 kg

DRUGS (5)
  1. LETAIRIS [Concomitant]
     Active Substance: AMBRISENTAN
  2. VELETRI [Suspect]
     Active Substance: EPOPROSTENOL
     Dosage: 7 NG/KG, PER MIN
     Route: 042
  3. VELETRI [Suspect]
     Active Substance: EPOPROSTENOL
     Route: 042
  4. VELETRI [Suspect]
     Active Substance: EPOPROSTENOL
     Indication: PULMONARY ARTERIAL HYPERTENSION
     Dosage: 34.7 NG/KG, PER MIN
     Route: 042
  5. SILDENAFIL. [Concomitant]
     Active Substance: SILDENAFIL

REACTIONS (17)
  - Staphylococcal sepsis [Recovered/Resolved with Sequelae]
  - Fatigue [Recovered/Resolved]
  - Endocarditis [Recovered/Resolved with Sequelae]
  - Hypersensitivity [Unknown]
  - Catheter site irritation [Unknown]
  - Chest discomfort [Recovered/Resolved]
  - Catheter site erythema [Unknown]
  - Headache [Unknown]
  - Infusion site pruritus [Unknown]
  - Sepsis [Unknown]
  - Device related infection [Recovered/Resolved with Sequelae]
  - Flushing [Unknown]
  - Diarrhoea [Unknown]
  - Catheter management [Unknown]
  - Pericardial effusion [Unknown]
  - Application site pruritus [Unknown]
  - Influenza [Unknown]
